FAERS Safety Report 13587929 (Version 1)
Quarter: 2017Q2

REPORT INFORMATION
  Report Type: Spontaneous
  Country: US (occurrence: US)
  Receive Date: 20170527
  Receipt Date: 20170527
  Transmission Date: 20170830
  Serious: Yes (Death, Other)
  Sender: FDA-Public Use
  Company Number: US-ACCORD-051920

PATIENT
  Age: 55 Year
  Sex: Male
  Weight: 96 kg

DRUGS (1)
  1. METHOTREXATE. [Suspect]
     Active Substance: METHOTREXATE
     Indication: B-CELL LYMPHOMA
     Dosage: HIGH DOSE METHOTREXATE (HDMTX). DOSE 8 G/M2 (TOTAL 17 G).
     Route: 042

REACTIONS (4)
  - Hypotension [Unknown]
  - Acute kidney injury [Unknown]
  - Pancytopenia [Unknown]
  - Septic shock [Fatal]
